FAERS Safety Report 23787230 (Version 1)
Quarter: 2024Q2

REPORT INFORMATION
  Report Type: Spontaneous
  Country: US (occurrence: US)
  Receive Date: 20240426
  Receipt Date: 20240426
  Transmission Date: 20240715
  Serious: Yes (Other)
  Sender: FDA-Public Use
  Company Number: US-SUN PHARMACEUTICAL INDUSTRIES LTD-2024R1-442959

PATIENT
  Sex: Male

DRUGS (7)
  1. BUPRENORPHINE [Suspect]
     Active Substance: BUPRENORPHINE
     Indication: Abdominal distension
     Route: 060
  2. BUPRENORPHINE [Suspect]
     Active Substance: BUPRENORPHINE
     Indication: Pain
  3. BUPRENORPHINE [Suspect]
     Active Substance: BUPRENORPHINE
     Indication: Constipation
  4. MORPHINE [Suspect]
     Active Substance: MORPHINE
     Indication: Abdominal distension
     Route: 048
  5. MORPHINE [Suspect]
     Active Substance: MORPHINE
     Indication: Pain
  6. FENTANYL [Suspect]
     Active Substance: FENTANYL\FENTANYL CITRATE
     Indication: Abdominal distension
     Dosage: 25 MICROGRAM/HOUR, TITRATED UP TO 125 UG/HOUR
     Route: 065
  7. FENTANYL [Suspect]
     Active Substance: FENTANYL\FENTANYL CITRATE
     Indication: Pain

REACTIONS (2)
  - Intestinal obstruction [Recovering/Resolving]
  - Ileus [Recovering/Resolving]
